FAERS Safety Report 9813478 (Version 1)
Quarter: 2014Q1

REPORT INFORMATION
  Report Type: Spontaneous
  Country: GB (occurrence: GB)
  Receive Date: 20140113
  Receipt Date: 20140113
  Transmission Date: 20141002
  Serious: Yes (Hospitalization)
  Sender: FDA-Public Use
  Company Number: GB-ELI_LILLY_AND_COMPANY-GB201401001100

PATIENT
  Sex: Male

DRUGS (4)
  1. HUMALOG 25% LISPRO, 75% NPL [Suspect]
     Indication: DIABETES MELLITUS
     Dosage: 32 U, EACH MORNING
     Route: 065
  2. HUMALOG 25% LISPRO, 75% NPL [Suspect]
     Dosage: 26 U, EACH EVENING
     Route: 065
  3. HUMALOG 25% LISPRO, 75% NPL [Suspect]
     Indication: DIABETES MELLITUS
     Dosage: 32 U, EACH MORNING
     Route: 065
  4. HUMALOG 25% LISPRO, 75% NPL [Suspect]
     Dosage: 26 U, EACH EVENING
     Route: 065

REACTIONS (2)
  - Dyspnoea [Unknown]
  - Cataract [Not Recovered/Not Resolved]
